FAERS Safety Report 21238859 (Version 3)
Quarter: 2022Q3

REPORT INFORMATION
  Report Type: Spontaneous
  Country: US (occurrence: US)
  Receive Date: 20220822
  Receipt Date: 20220916
  Transmission Date: 20221027
  Serious: Yes (Other)
  Sender: FDA-Public Use
  Company Number: US-BAYER-2022A116079

PATIENT
  Age: 59 Year
  Sex: Female

DRUGS (1)
  1. ALKA-SELTZER PLUS MAXIMUM STRENGTH DAY AND NIGHT COLD AND FLU POWERMAX [Suspect]
     Active Substance: ACETAMINOPHEN\DEXTROMETHORPHAN HYDROBROMIDE\DOXYLAMINE SUCCINATE\PHENYLEPHRINE HYDROCHLORIDE
     Dosage: HE TOOK 2 LAST NIGHT
     Route: 048

REACTIONS (4)
  - Foreign body in throat [Recovered/Resolved]
  - Product use complaint [None]
  - Expired product administered [None]
  - Product physical consistency issue [None]
